FAERS Safety Report 22092907 (Version 1)
Quarter: 2023Q1

REPORT INFORMATION
  Report Type: Spontaneous
  Country: US (occurrence: None)
  Receive Date: 20230313
  Receipt Date: 20230313
  Transmission Date: 20230418
  Serious: Yes (Other)
  Sender: FDA-Public Use
  Company Number: None

PATIENT
  Age: 80 Year
  Sex: Female
  Weight: 53.1 kg

DRUGS (11)
  1. KIRKLAND SIGNATURE LAXACLEAR ORIGINAL PRESCRIPTION STRENGTH [Suspect]
     Active Substance: POLYETHYLENE GLYCOL 3350
     Indication: Constipation
     Dosage: OTHER QUANTITY : 1 CUPFUL;?FREQUENCY : AT BEDTIME;?
     Route: 048
     Dates: start: 20230311, end: 20230312
  2. CITALOPRAM [Concomitant]
     Active Substance: CITALOPRAM HYDROBROMIDE
  3. WELLBUTRIN [Concomitant]
     Active Substance: BUPROPION HYDROCHLORIDE
  4. THYROID [Concomitant]
     Active Substance: LEVOTHYROXINE\LIOTHYRONINE
  5. LOSARTAN [Concomitant]
     Active Substance: LOSARTAN
  6. GABAPENTIN [Concomitant]
     Active Substance: GABAPENTIN
  7. PROLIA [Concomitant]
     Active Substance: DENOSUMAB
  8. FISH OIL [Concomitant]
     Active Substance: FISH OIL
  9. FLAXSEED [Concomitant]
     Active Substance: FLAX SEED
  10. VITAMINS [Concomitant]
     Active Substance: VITAMINS
  11. vitD3 [Concomitant]

REACTIONS (2)
  - Product taste abnormal [None]
  - Therapeutic product effect increased [None]

NARRATIVE: CASE EVENT DATE: 20230312
